FAERS Safety Report 4449294-7 (Version None)
Quarter: 2004Q3

REPORT INFORMATION
  Report Type: 
  Country: None (occurrence: None)
  Receive Date: 20040913
  Receipt Date: 20040826
  Transmission Date: 20050211
  Serious: Yes (Other)
  Sender: FDA-Public Use
  Company Number: 2004-BP-07310BP

PATIENT

DRUGS (1)
  1. CATAPRES [Suspect]
     Dosage: 0.4 MG (0.2 MG), PO
     Route: 048

REACTIONS (1)
  - DRUG ABUSER [None]
